FAERS Safety Report 14576952 (Version 1)
Quarter: 2018Q1

REPORT INFORMATION
  Report Type: Spontaneous
  Country: US (occurrence: US)
  Receive Date: 20180225
  Receipt Date: 20180225
  Transmission Date: 20180509
  Serious: Yes (Other)
  Sender: FDA-Public Use
  Company Number: None

PATIENT
  Age: 65 Year
  Sex: Female
  Weight: 81 kg

DRUGS (31)
  1. REMERON [Suspect]
     Active Substance: MIRTAZAPINE
     Indication: DEPRESSION
     Dosage: ?          QUANTITY:1 TABLET(S);?
     Route: 048
     Dates: start: 20170907, end: 20170922
  2. HYOSCYAMINE SL [Concomitant]
     Active Substance: HYOSCYAMINE SULFATE
  3. MIRALAX [Concomitant]
     Active Substance: POLYETHYLENE GLYCOL 3350
  4. MIRABEGRON ER [Concomitant]
     Active Substance: MIRABEGRON
  5. VOLTARIN GEL [Concomitant]
  6. SIMETHICONE (DIMETHICONE) [Concomitant]
     Active Substance: DIMETHICONE
  7. ATORVASTATIN [Concomitant]
     Active Substance: ATORVASTATIN
  8. CELECOXIB. [Concomitant]
     Active Substance: CELECOXIB
  9. METAXALONE. [Concomitant]
     Active Substance: METAXALONE
  10. METOPROLOL. [Concomitant]
     Active Substance: METOPROLOL
  11. SULRALFATE [Concomitant]
  12. CRANBERRY. [Concomitant]
     Active Substance: CRANBERRY
  13. GLUCOSAMINE-MSM COMPLEX [Concomitant]
  14. CYMBALTA [Concomitant]
     Active Substance: DULOXETINE HYDROCHLORIDE
  15. POTASSIUM [Concomitant]
     Active Substance: POTASSIUM
  16. PREGABALIN. [Concomitant]
     Active Substance: PREGABALIN
  17. RANITIDINE. [Concomitant]
     Active Substance: RANITIDINE
  18. RANOLAZINE ER [Concomitant]
  19. AMLODIPINE [Concomitant]
     Active Substance: AMLODIPINE BESYLATE
  20. TRAZODONE [Concomitant]
     Active Substance: TRAZODONE HYDROCHLORIDE
  21. PERCOCET [Concomitant]
     Active Substance: ACETAMINOPHEN\OXYCODONE HYDROCHLORIDE
  22. REMERON [Suspect]
     Active Substance: MIRTAZAPINE
     Indication: INSOMNIA
     Dosage: ?          QUANTITY:1 TABLET(S);?
     Route: 048
     Dates: start: 20170907, end: 20170922
  23. ALBUTEROL. [Concomitant]
     Active Substance: ALBUTEROL
  24. BUDESONIDE. [Concomitant]
     Active Substance: BUDESONIDE
  25. LOSARTIN [Concomitant]
     Active Substance: LOSARTAN
  26. CAL-MAG 1:1 CAPSULE [Concomitant]
     Active Substance: CALCIUM\MAGNESIUM
  27. METAMUCIL [Concomitant]
     Active Substance: PLANTAGO SEED
  28. AMITIZA [Concomitant]
     Active Substance: LUBIPROSTONE
  29. ROPINIROLE. [Concomitant]
     Active Substance: ROPINIROLE
  30. ASCORBIC ACID. [Concomitant]
     Active Substance: ASCORBIC ACID
  31. MULTIVITAMINS [Concomitant]
     Active Substance: VITAMINS

REACTIONS (3)
  - Somnolence [None]
  - Therapy cessation [None]
  - Delayed recovery from anaesthesia [None]

NARRATIVE: CASE EVENT DATE: 20170922
